FAERS Safety Report 21380428 (Version 1)
Quarter: 2022Q3

REPORT INFORMATION
  Report Type: Spontaneous
  Country: IT (occurrence: IT)
  Receive Date: 20220927
  Receipt Date: 20220927
  Transmission Date: 20221027
  Serious: Yes (Other)
  Sender: FDA-Public Use
  Company Number: IT-ELI_LILLY_AND_COMPANY-IT202209004782

PATIENT
  Age: 46 Year
  Sex: Female

DRUGS (8)
  1. DIAZEPAM [Suspect]
     Active Substance: DIAZEPAM
     Indication: Schizotypal personality disorder
     Dosage: UNK, UNKNOWN
  2. DIAZEPAM [Suspect]
     Active Substance: DIAZEPAM
     Indication: Intellectual disability
  3. CARBAMAZEPINE [Suspect]
     Active Substance: CARBAMAZEPINE
     Indication: Schizotypal personality disorder
     Dosage: UNK, UNKNOWN
  4. CARBAMAZEPINE [Suspect]
     Active Substance: CARBAMAZEPINE
     Indication: Intellectual disability
  5. THIORIDAZINE [Suspect]
     Active Substance: THIORIDAZINE
     Indication: Schizotypal personality disorder
     Dosage: UNK, UNKNOWN
  6. THIORIDAZINE [Suspect]
     Active Substance: THIORIDAZINE
     Indication: Intellectual disability
  7. OLANZAPINE [Suspect]
     Active Substance: OLANZAPINE
     Indication: Intellectual disability
     Dosage: UNK, UNKNOWN
     Route: 050
  8. OLANZAPINE [Suspect]
     Active Substance: OLANZAPINE
     Indication: Schizotypal personality disorder

REACTIONS (1)
  - Dystonia [Unknown]
